FAERS Safety Report 16222523 (Version 1)
Quarter: 2019Q2

REPORT INFORMATION
  Report Type: Spontaneous
  Country: US (occurrence: US)
  Receive Date: 20190422
  Receipt Date: 20190422
  Transmission Date: 20190711
  Serious: Yes (Hospitalization)
  Sender: FDA-Public Use
  Company Number: US-PFIZER INC-2017550169

PATIENT
  Age: 42 Year
  Sex: Female

DRUGS (17)
  1. MORPHINE SULFATE. [Suspect]
     Active Substance: MORPHINE SULFATE
     Dosage: 9.6 MG, 1X/DAY (CONCENTRATION 50 MG/ML)
     Route: 037
     Dates: start: 200607, end: 200610
  2. MORPHINE SULFATE. [Suspect]
     Active Substance: MORPHINE SULFATE
     Dosage: 15 MG, 1X/DAY (CONCENTRATION 50 MG/ML)
     Route: 037
     Dates: start: 200710, end: 201005
  3. MORPHINE SULFATE. [Suspect]
     Active Substance: MORPHINE SULFATE
     Dosage: 8 MG, 1X/DAY (CONCENTRATION 50 MG/ML)
     Route: 037
     Dates: start: 200502, end: 200511
  4. MORPHINE SULFATE. [Suspect]
     Active Substance: MORPHINE SULFATE
     Dosage: 13 MG, 1X/DAY (CONCENTRATION 50 MG/ML)
     Route: 037
     Dates: start: 200709, end: 200710
  5. MORPHINE SULFATE. [Suspect]
     Active Substance: MORPHINE SULFATE
     Dosage: 6 MG, 1X/DAY (CONCENTRATION 50 MG/ML)
     Route: 037
     Dates: start: 200202, end: 200402
  6. MORPHINE SULFATE. [Suspect]
     Active Substance: MORPHINE SULFATE
     Dosage: 21 MG, 1X/DAY (CONCENTRATION 50 MG/ML)
     Route: 037
     Dates: start: 201602
  7. MORPHINE SULFATE. [Suspect]
     Active Substance: MORPHINE SULFATE
     Indication: ABDOMINAL PAIN
     Dosage: 4.8 MG, 1X/DAY (CONCENTRATION 25 MG/ML)
     Route: 037
     Dates: start: 199712, end: 199908
  8. MORPHINE SULFATE. [Suspect]
     Active Substance: MORPHINE SULFATE
     Dosage: 5.5 MG, 1X/DAY (CONCENTRATION 50 MG/ML)
     Route: 037
     Dates: start: 200012, end: 200202
  9. MORPHINE SULFATE. [Suspect]
     Active Substance: MORPHINE SULFATE
     Dosage: 16 MG, 1X/DAY (CONCENTRATION 50 MG/ML)
     Route: 037
     Dates: start: 201005, end: 201103
  10. MORPHINE SULFATE. [Suspect]
     Active Substance: MORPHINE SULFATE
     Dosage: 18.7 MG, 1X/DAY (CONCENTRATION 50 MG/ML)
     Route: 037
     Dates: start: 201302, end: 201305
  11. MORPHINE SULFATE. [Suspect]
     Active Substance: MORPHINE SULFATE
     Dosage: 11 MG, 1X/DAY (CONCENTRATION 50 MG/ML)
     Route: 037
     Dates: start: 200610, end: 200709
  12. MORPHINE SULFATE. [Suspect]
     Active Substance: MORPHINE SULFATE
     Dosage: 18.5 MG, 1X/DAY (CONCENTRATION 50 MG/ML)
     Route: 037
     Dates: start: 201201, end: 201302
  13. MORPHINE SULFATE. [Suspect]
     Active Substance: MORPHINE SULFATE
     Dosage: 5.3 MG, 1X/DAY (CONCENTRATION 25 MG/ML)
     Route: 037
     Dates: start: 199908, end: 200012
  14. MORPHINE SULFATE. [Suspect]
     Active Substance: MORPHINE SULFATE
     Dosage: 17.5 MG, 1X/DAY (CONCENTRATION 50 MG/ML)
     Route: 037
     Dates: start: 201103, end: 201201
  15. MORPHINE SULFATE. [Suspect]
     Active Substance: MORPHINE SULFATE
     Dosage: 6.6 MG, 1X/DAY (CONCENTRATION 50 MG/ML)
     Route: 037
     Dates: start: 200402, end: 200502
  16. MORPHINE SULFATE. [Suspect]
     Active Substance: MORPHINE SULFATE
     Dosage: 8.8 MG, 1X/DAY (CONCENTRATION 50 MG/ML)
     Route: 037
     Dates: start: 200511, end: 200607
  17. MORPHINE SULFATE. [Suspect]
     Active Substance: MORPHINE SULFATE
     Dosage: 19.2 MG, 1X/DAY (CONCENTRATION 50 MG/ML)
     Route: 037
     Dates: start: 201305, end: 201602

REACTIONS (2)
  - Prescribed overdose [Unknown]
  - Granuloma [Recovering/Resolving]
